FAERS Safety Report 8595911 (Version 2)
Quarter: 2013Q2

REPORT INFORMATION
  Report Type: Spontaneous
  Country: US (occurrence: US)
  Receive Date: 20120605
  Receipt Date: 20130614
  Transmission Date: 20140414
  Serious: Yes (Disabling)
  Sender: FDA-Public Use
  Company Number: US-ASTRAZENECA-2012SE35226

PATIENT
  Age: 40 Year
  Sex: Female
  Weight: 77.6 kg

DRUGS (1)
  1. NEXIUM [Suspect]
     Indication: GASTROOESOPHAGEAL REFLUX DISEASE
     Dosage: TWO TIMES A DAY
     Route: 048

REACTIONS (12)
  - Back disorder [Unknown]
  - Multiple fractures [Unknown]
  - Bladder disorder [Unknown]
  - Mobility decreased [Unknown]
  - Arthropathy [Unknown]
  - Gastric disorder [Unknown]
  - Osteoporosis [Unknown]
  - Arthritis [Unknown]
  - Osteogenesis imperfecta [Unknown]
  - Cough [Unknown]
  - Chronic obstructive pulmonary disease [Unknown]
  - Depression [Unknown]
